FAERS Safety Report 15601262 (Version 2)
Quarter: 2018Q4

REPORT INFORMATION
  Report Type: Spontaneous
  Country: DE (occurrence: DE)
  Receive Date: 20181109
  Receipt Date: 20181113
  Transmission Date: 20190205
  Serious: Yes (Other)
  Sender: FDA-Public Use
  Company Number: DE-ALK-ABELLO A/S-2018AA003101

PATIENT

DRUGS (1)
  1. ALK-DEPOT SQ 802 WESPENGIFT [Suspect]
     Active Substance: VESPULA FLAVOPILOSA VENOM PROTEIN\VESPULA GERMANICA VENOM PROTEIN\VESPULA MACULIFRONS VENOM PROTEIN\VESPULA PENSYLVANICA VENOM PROTEIN\VESPULA SQUAMOSA VENOM PROTEIN\VESPULA VULGARIS VENOM PROTEIN
     Indication: ALLERGY TO VENOM

REACTIONS (2)
  - Allergy to arthropod sting [Recovered/Resolved]
  - Drug ineffective [Recovered/Resolved]
